FAERS Safety Report 9471823 (Version 1)
Quarter: 2013Q3

REPORT INFORMATION
  Report Type: Spontaneous
  Country: US (occurrence: None)
  Receive Date: 20130819
  Receipt Date: 20130819
  Transmission Date: 20140515
  Serious: Yes (Hospitalization, Other)
  Sender: FDA-Public Use
  Company Number: USA/USA/13/0034086

PATIENT
  Sex: Female

DRUGS (2)
  1. CLOPIDOGREL BISULFATE [Suspect]
     Indication: STENT PLACEMENT
  2. ASPIRIN (ACETYLSALICYLIC ACID) [Suspect]
     Indication: STENT PLACEMENT

REACTIONS (3)
  - Abdominal wall haematoma [None]
  - Pulmonary embolism [None]
  - Extravasation [None]
